FAERS Safety Report 10439055 (Version 3)
Quarter: 2014Q4

REPORT INFORMATION
  Report Type: Spontaneous
  Country: US (occurrence: US)
  Receive Date: 20140908
  Receipt Date: 20141124
  Transmission Date: 20150528
  Serious: Yes (Other)
  Sender: FDA-Public Use
  Company Number: US-BRISTOL-MYERS SQUIBB COMPANY-21354659

PATIENT
  Age: 62 Year
  Sex: Female

DRUGS (1)
  1. SPRYCEL [Suspect]
     Active Substance: DASATINIB
     Indication: CHRONIC MYELOID LEUKAEMIA
     Dosage: BATCH NUMBER 4E78047B
     Route: 048
     Dates: start: 201405

REACTIONS (6)
  - Sleep apnoea syndrome [Unknown]
  - Squamous cell carcinoma of skin [Unknown]
  - Fatigue [Unknown]
  - Acne [Unknown]
  - Multiple sclerosis [Unknown]
  - Skin ulcer [Unknown]

NARRATIVE: CASE EVENT DATE: 201406
